FAERS Safety Report 8007769-8 (Version None)
Quarter: 2011Q4

REPORT INFORMATION
  Report Type: 
  Country: None (occurrence: None)
  Receive Date: 20111123
  Receipt Date: 20110823
  Transmission Date: 20120403
  Serious: No
  Sender: FDA-Public Use
  Company Number: 336969

PATIENT
  Age: 55 Year
  Sex: Male

DRUGS (2)
  1. COUMADIN [Concomitant]
  2. VICTOZA [Suspect]
     Indication: PRODUCT USED FOR UNKNOWN INDICATION
     Dosage: 1.2 MG, QD, SUBCUTANEOUS
     Route: 058

REACTIONS (2)
  - PALPITATIONS [None]
  - DIZZINESS [None]
